FAERS Safety Report 22842553 (Version 4)
Quarter: 2023Q4

REPORT INFORMATION
  Report Type: Report from Study
  Country: CA (occurrence: CA)
  Receive Date: 20230821
  Receipt Date: 20231117
  Transmission Date: 20240109
  Serious: Yes (Other)
  Sender: FDA-Public Use
  Company Number: CA-JNJFOC-20230754716

PATIENT
  Age: 34 Year
  Sex: Female

DRUGS (1)
  1. REMICADE [Suspect]
     Active Substance: INFLIXIMAB
     Indication: Crohn^s disease
     Route: 042
     Dates: start: 20170206

REACTIONS (3)
  - Beta haemolytic streptococcal infection [Unknown]
  - Fungal infection [Recovered/Resolved]
  - Bacterial vaginosis [Not Recovered/Not Resolved]

NARRATIVE: CASE EVENT DATE: 20230701
